FAERS Safety Report 10263963 (Version 2)
Quarter: 2014Q2

REPORT INFORMATION
  Report Type: Spontaneous
  Country: FR (occurrence: FR)
  Receive Date: 20140627
  Receipt Date: 20140627
  Transmission Date: 20141212
  Serious: Yes (Hospitalization, Disabling, Other)
  Sender: FDA-Public Use
  Company Number: FR-009507513-1404FRA005825

PATIENT
  Age: 70 Year
  Sex: Male
  Weight: 80 kg

DRUGS (5)
  1. FOSAVANCE [Suspect]
     Indication: OSTEOPOROSIS
     Dosage: 1 DF, QW
     Route: 065
     Dates: start: 2012, end: 20140401
  2. CALCIPAT VIT D [Concomitant]
     Dosage: 1 DF, QD
     Route: 065
  3. OMEPRAZOLE [Concomitant]
  4. KARDEGIC [Concomitant]
  5. LIPANTHYL [Concomitant]

REACTIONS (2)
  - Drug intolerance [Recovering/Resolving]
  - Diplegia [Recovering/Resolving]
